FAERS Safety Report 14384257 (Version 1)
Quarter: 2018Q1

REPORT INFORMATION
  Report Type: Spontaneous
  Country: US (occurrence: US)
  Receive Date: 20180115
  Receipt Date: 20180115
  Transmission Date: 20180509
  Serious: No
  Sender: FDA-Public Use
  Company Number: US-009507513-1801USA004299

PATIENT
  Sex: Female

DRUGS (1)
  1. NUVARING [Suspect]
     Active Substance: ETHINYL ESTRADIOL\ETONOGESTREL
     Dosage: IN PLACE CONTINUOUSLY FOR THREE WEEKS, FOLLOWED BY A ONE-WEEK RING-FREE INTERVAL
     Route: 067

REACTIONS (5)
  - Complication associated with device [Recovered/Resolved]
  - Device difficult to use [Recovered/Resolved]
  - Drug dose omission [Unknown]
  - Product quality issue [Unknown]
  - No adverse event [Unknown]
